FAERS Safety Report 16879261 (Version 1)
Quarter: 2019Q4

REPORT INFORMATION
  Report Type: Spontaneous
  Country: IT (occurrence: IT)
  Receive Date: 20191003
  Receipt Date: 20191003
  Transmission Date: 20200122
  Serious: Yes (Hospitalization)
  Sender: FDA-Public Use
  Company Number: IT-TEVA-2019-IT-1116086

PATIENT
  Age: 88 Year
  Sex: Female

DRUGS (4)
  1. CLOPIDOGREL BESILATE [Suspect]
     Active Substance: CLOPIDOGREL BESILATE
     Indication: ACUTE MYOCARDIAL INFARCTION
     Route: 048
     Dates: start: 20190501, end: 20190603
  2. BISOPROLOLO ACTAVIS [Concomitant]
     Active Substance: BISOPROLOL FUMARATE
  3. CARDIOASPIRIN 100 MG COMPRESSE GASTRORESISTENTI [Suspect]
     Active Substance: ASPIRIN
     Indication: ACUTE MYOCARDIAL INFARCTION
     Dosage: 100 MG
     Route: 048
     Dates: start: 20190501, end: 20190603
  4. TORVAST 80 MG COMPRESSE RIVESTITE CON FILM [Concomitant]

REACTIONS (2)
  - Rectal haemorrhage [Unknown]
  - Anaemia [Unknown]

NARRATIVE: CASE EVENT DATE: 20190603
